FAERS Safety Report 8062560-1 (Version None)
Quarter: 2012Q1

REPORT INFORMATION
  Report Type: 
  Country: None (occurrence: None)
  Receive Date: 20120123
  Receipt Date: 20120123
  Transmission Date: 20120608
  Serious: Yes (Hospitalization)
  Sender: FDA-Public Use
  Company Number: IT-SANOFI-AVENTIS-2011SA025427

PATIENT
  Age: 40 Year
  Sex: Female

DRUGS (7)
  1. ARTHROTEC [Concomitant]
     Route: 048
     Dates: start: 20080822
  2. CALCIUM CARBONATE/COLECALCIFEROL [Concomitant]
     Route: 048
     Dates: start: 20081221
  3. KETOROLAC TROMETHAMINE [Concomitant]
     Route: 048
     Dates: start: 20100701
  4. MEDROL [Concomitant]
     Route: 048
     Dates: start: 20081221
  5. MABTHERA [Concomitant]
     Route: 042
     Dates: start: 20100823
  6. PANTOPRAZOLE [Concomitant]
     Route: 048
     Dates: start: 20080822
  7. LASIX [Suspect]
     Indication: RHEUMATOID ARTHRITIS
     Route: 048
     Dates: start: 20100901, end: 20100901

REACTIONS (2)
  - SYNCOPE [None]
  - OFF LABEL USE [None]
